FAERS Safety Report 5481803-1 (Version None)
Quarter: 2007Q4

REPORT INFORMATION
  Report Type: 
  Country: None (occurrence: None)
  Receive Date: 20071010
  Receipt Date: 20071002
  Transmission Date: 20080405
  Serious: Yes (Death, Hospitalization)
  Sender: FDA-Public Use
  Company Number: SG-ROXANE LABORATORIES, INC-2007-BP-22301RO

PATIENT
  Age: 72 Year
  Sex: Male

DRUGS (4)
  1. PROPRANOLOL [Suspect]
     Indication: THYROTOXIC CRISIS
     Route: 048
  2. PROPYLTHIOURACIL [Suspect]
     Indication: THYROTOXIC CRISIS
     Route: 048
  3. HYDROCORTISONE [Suspect]
     Indication: THYROTOXIC CRISIS
     Route: 042
  4. CEFTRIAXONE [Concomitant]
     Indication: SEPSIS
     Route: 042

REACTIONS (4)
  - CARDIAC ARREST [None]
  - CIRCULATORY COLLAPSE [None]
  - SINUS BRADYCARDIA [None]
  - UNRESPONSIVE TO STIMULI [None]
